FAERS Safety Report 18401512 (Version 5)
Quarter: 2020Q4

REPORT INFORMATION
  Report Type: Report from Study
  Country: FR (occurrence: FR)
  Receive Date: 20201020
  Receipt Date: 20201126
  Transmission Date: 20210114
  Serious: Yes (Death, Life-Threatening)
  Sender: FDA-Public Use
  Company Number: FR-BIOVITRUM-2020FR5470

PATIENT
  Age: 79 Year
  Sex: Male
  Weight: 105 kg

DRUGS (24)
  1. ENTRESTO [Concomitant]
     Active Substance: SACUBITRIL\VALSARTAN
     Indication: PRODUCT USED FOR UNKNOWN INDICATION
     Dosage: 49:51
  2. PARACETAMOL [Concomitant]
     Active Substance: ACETAMINOPHEN
     Indication: PRODUCT USED FOR UNKNOWN INDICATION
     Dosage: 1000
  3. INEXIUM [Concomitant]
     Active Substance: ESOMEPRAZOLE
     Indication: PRODUCT USED FOR UNKNOWN INDICATION
  4. ASPIRIN. [Concomitant]
     Active Substance: ASPIRIN
     Indication: PRODUCT USED FOR UNKNOWN INDICATION
  5. TAMSULOSINE [Concomitant]
     Active Substance: TAMSULOSIN HYDROCHLORIDE
     Indication: PRODUCT USED FOR UNKNOWN INDICATION
  6. CORDARONE [Concomitant]
     Active Substance: AMIODARONE HYDROCHLORIDE
     Dosage: TWICE DAILY
     Dates: start: 20201015
  7. FUROSEMIDE. [Concomitant]
     Active Substance: FUROSEMIDE
  8. SUFENTANIL [Concomitant]
     Active Substance: SUFENTANIL
     Dates: start: 20201006
  9. KARDEGIC [Concomitant]
     Active Substance: ASPIRIN DL-LYSINE
     Indication: PRODUCT USED FOR UNKNOWN INDICATION
  10. CEFTRIAXONE. [Concomitant]
     Active Substance: CEFTRIAXONE
     Dates: start: 20201001
  11. LASILIX [Concomitant]
     Active Substance: FUROSEMIDE
     Indication: PRODUCT USED FOR UNKNOWN INDICATION
  12. CISATRACURIUM. [Concomitant]
     Active Substance: CISATRACURIUM
     Dosage: TOF LESS THAN 2
     Dates: start: 20201006
  13. KINERET [Suspect]
     Active Substance: ANAKINRA
     Indication: COVID-19
     Dates: start: 20201005
  14. ALDACTONE [Concomitant]
     Active Substance: SPIRONOLACTONE
     Indication: PRODUCT USED FOR UNKNOWN INDICATION
     Dosage: 1/2 PILL
  15. BISOCE [Concomitant]
     Active Substance: BISOPROLOL
     Indication: PRODUCT USED FOR UNKNOWN INDICATION
  16. KARDEGIC [Concomitant]
     Active Substance: ASPIRIN DL-LYSINE
  17. LOVENOX [Concomitant]
     Active Substance: ENOXAPARIN SODIUM
     Indication: ATRIAL FIBRILLATION
     Dates: start: 20201002
  18. ZYLORIC [Concomitant]
     Active Substance: ALLOPURINOL
     Indication: PRODUCT USED FOR UNKNOWN INDICATION
  19. CARDENSIEL [Concomitant]
     Active Substance: BISOPROLOL FUMARATE
     Indication: PRODUCT USED FOR UNKNOWN INDICATION
  20. PROPOFOL. [Concomitant]
     Active Substance: PROPOFOL
     Dates: start: 20201006
  21. DEXAMETHASONE. [Concomitant]
     Active Substance: DEXAMETHASONE
     Indication: COVID-19
     Dates: start: 20201004
  22. ALLOPURINOL. [Concomitant]
     Active Substance: ALLOPURINOL
  23. DOLIPRANE [Concomitant]
     Active Substance: ACETAMINOPHEN
     Indication: PRODUCT USED FOR UNKNOWN INDICATION
  24. TIENAM [Concomitant]
     Active Substance: CILASTATIN SODIUM\IMIPENEM
     Dates: start: 20201016

REACTIONS (1)
  - Acute respiratory failure [Fatal]

NARRATIVE: CASE EVENT DATE: 20200928
